FAERS Safety Report 5266732-0 (Version None)
Quarter: 2007Q1

REPORT INFORMATION
  Report Type: 
  Country: None (occurrence: None)
  Receive Date: 20070312
  Receipt Date: 20070226
  Transmission Date: 20070707
  Serious: Yes (Hospitalization)
  Sender: FDA-Public Use
  Company Number: 235587

PATIENT
  Age: 56 Year
  Sex: Female
  Weight: 70 kg

DRUGS (2)
  1. HERCEPTIN [Suspect]
     Indication: BREAST CANCER
     Dosage: 567 MG, INTRAVENOUS
     Route: 042
     Dates: start: 20061123
  2. DOCETAXEL (DOCETAXEL) [Suspect]
     Indication: BREAST CANCER
     Dosage: 180 MG, INTRAVENOUS
     Route: 042
     Dates: start: 20061123

REACTIONS (1)
  - NEUTROPENIC SEPSIS [None]
